FAERS Safety Report 25421546 (Version 1)
Quarter: 2025Q2

REPORT INFORMATION
  Report Type: Report from Study
  Country: IR (occurrence: IR)
  Receive Date: 20250611
  Receipt Date: 20250611
  Transmission Date: 20250716
  Serious: Yes (Other)
  Sender: ROCHE
  Company Number: IR-ROCHE-10000303654

PATIENT

DRUGS (1)
  1. RITUXIMAB [Suspect]
     Active Substance: RITUXIMAB
     Indication: Multiple sclerosis
     Route: 065

REACTIONS (23)
  - Oropharyngeal pain [Unknown]
  - Dyspnoea [Unknown]
  - Muscle spasms [Unknown]
  - Weight increased [Unknown]
  - Arthralgia [Unknown]
  - Oedema peripheral [Unknown]
  - Hypersensitivity [Unknown]
  - Anaphylactic reaction [Unknown]
  - Off label use [Unknown]
  - Chest pain [Unknown]
  - Tachycardia [Unknown]
  - Capillary leak syndrome [Unknown]
  - Anaemia [Unknown]
  - Hyperglycaemia [Unknown]
  - Candida infection [Unknown]
  - Sinusitis [Unknown]
  - Headache [Unknown]
  - Nausea [Unknown]
  - Hypotension [Unknown]
  - Insomnia [Unknown]
  - Hypothyroidism [Unknown]
  - Pneumonia [Unknown]
  - Hypertension [Unknown]
